FAERS Safety Report 18022792 (Version 2)
Quarter: 2020Q3

REPORT INFORMATION
  Report Type: Spontaneous
  Country: FR (occurrence: FR)
  Receive Date: 20200714
  Receipt Date: 20200903
  Transmission Date: 20201103
  Serious: Yes (Hospitalization)
  Sender: FDA-Public Use
  Company Number: FR-PFIZER INC-2020265463

PATIENT
  Sex: Female

DRUGS (2)
  1. ALPRAZOLAM. [Suspect]
     Active Substance: ALPRAZOLAM
     Indication: DEPRESSION
     Dosage: UNK
     Route: 065
  2. ZOPICLONE [Suspect]
     Active Substance: ZOPICLONE
     Indication: DEPRESSION
     Dosage: UNK
     Route: 065

REACTIONS (1)
  - Fall [Unknown]

NARRATIVE: CASE EVENT DATE: 201910
